FAERS Safety Report 17020693 (Version 3)
Quarter: 2019Q4

REPORT INFORMATION
  Report Type: Report from Study
  Country: BE (occurrence: BE)
  Receive Date: 20191112
  Receipt Date: 20191202
  Transmission Date: 20200122
  Serious: Yes (Hospitalization)
  Sender: FDA-Public Use
  Company Number: BE-BEH-2019109263

PATIENT
  Age: 32 Year
  Sex: Male

DRUGS (1)
  1. HIZENTRA [Suspect]
     Active Substance: HUMAN IMMUNOGLOBULIN G
     Indication: PRODUCT USED FOR UNKNOWN INDICATION
     Dosage: 7 GRAM
     Route: 058
     Dates: start: 20191106

REACTIONS (2)
  - Drug hypersensitivity [Unknown]
  - Allergy to metals [Unknown]

NARRATIVE: CASE EVENT DATE: 20191106
